FAERS Safety Report 25426334 (Version 1)
Quarter: 2025Q2

REPORT INFORMATION
  Report Type: Spontaneous
  Country: FR (occurrence: FR)
  Receive Date: 20250612
  Receipt Date: 20250612
  Transmission Date: 20250717
  Serious: Yes (Other)
  Sender: CELLTRION
  Company Number: None

PATIENT

DRUGS (4)
  1. YUFLYMA [Suspect]
     Active Substance: ADALIMUMAB-AATY
     Indication: Colitis ulcerative
     Dosage: 80 MG EVERY 2 WEEKS
     Route: 058
     Dates: start: 202309
  2. ADALIMUMAB [Suspect]
     Active Substance: ADALIMUMAB
     Indication: Colitis ulcerative
     Dosage: 80 MG EVERY 2 WEEKS
     Route: 058
     Dates: start: 20191010, end: 20221206
  3. ADALIMUMAB [Suspect]
     Active Substance: ADALIMUMAB
     Dosage: 40 MG EVERY 2 WEEKS
     Route: 058
     Dates: start: 20221206, end: 202309
  4. PENTASA [Suspect]
     Active Substance: MESALAMINE
     Indication: Colitis ulcerative
     Route: 048

REACTIONS (1)
  - Pituitary tumour benign [Not Recovered/Not Resolved]
